FAERS Safety Report 4506610-5 (Version None)
Quarter: 2004Q4

REPORT INFORMATION
  Report Type: 
  Country: None (occurrence: None)
  Receive Date: 20041122
  Receipt Date: 20041116
  Transmission Date: 20050328
  Serious: Yes (Hospitalization)
  Sender: FDA-Public Use
  Company Number: DE-BRISTOL-MYERS SQUIBB COMPANY-12766580

PATIENT
  Age: 44 Year
  Sex: Female
  Weight: 95 kg

DRUGS (3)
  1. CARBOPLATIN [Suspect]
     Indication: CERVIX CARCINOMA
     Dosage: C1: 26-MAR-2004
     Route: 042
     Dates: start: 20040416, end: 20040416
  2. TAXOL [Suspect]
     Indication: CERVIX CARCINOMA
     Dosage: C1: 26-MAR-2004
     Route: 042
     Dates: start: 20040416, end: 20040416
  3. ARANESP [Concomitant]
     Indication: PROPHYLAXIS
     Route: 058
     Dates: start: 20040324, end: 20040430

REACTIONS (3)
  - ARTHRALGIA [None]
  - FATIGUE [None]
  - PYREXIA [None]
